FAERS Safety Report 22888501 (Version 4)
Quarter: 2025Q4

REPORT INFORMATION
  Report Type: Spontaneous
  Country: US (occurrence: US)
  Receive Date: 20230831
  Receipt Date: 20251028
  Transmission Date: 20260117
  Serious: Yes (Other)
  Sender: PFIZER
  Company Number: US-PFIZER INC-PV202300005386

PATIENT
  Age: 77 Year
  Sex: Male

DRUGS (1)
  1. CIBINQO [Suspect]
     Active Substance: ABROCITINIB
     Indication: Dermatitis
     Dosage: 100 MG

REACTIONS (3)
  - Spinal operation [Unknown]
  - Pruritus [Unknown]
  - Off label use [Unknown]
